FAERS Safety Report 11509672 (Version 1)
Quarter: 2015Q3

REPORT INFORMATION
  Report Type: Spontaneous
  Country: US (occurrence: US)
  Receive Date: 20150915
  Receipt Date: 20150915
  Transmission Date: 20151125
  Serious: No
  Sender: FDA-Public Use
  Company Number: US-JNJFOC-20150701878

PATIENT
  Age: 9 Month
  Sex: Female
  Weight: 9.07 kg

DRUGS (1)
  1. INFANTS TYLENOL [Suspect]
     Active Substance: ACETAMINOPHEN
     Indication: VIRAL INFECTION
     Dosage: 1 OR MORE TIMES DAILY
     Route: 048
     Dates: start: 20150627, end: 20150630

REACTIONS (3)
  - Product use issue [Unknown]
  - Exposure to unspecified agent [Unknown]
  - Product contamination physical [Unknown]
